FAERS Safety Report 16978974 (Version 2)
Quarter: 2019Q4

REPORT INFORMATION
  Report Type: Spontaneous
  Country: US (occurrence: US)
  Receive Date: 20191031
  Receipt Date: 20191119
  Transmission Date: 20200122
  Serious: No
  Sender: FDA-Public Use
  Company Number: US-PFIZER INC-2019465214

PATIENT
  Age: 59 Year
  Sex: Female
  Weight: 63.5 kg

DRUGS (2)
  1. CLINDAMYCIN PALMITATE HCL [Suspect]
     Active Substance: CLINDAMYCIN PALMITATE HYDROCHLORIDE
     Indication: ARTHRITIS INFECTIVE
     Dosage: 30 ML, 3X/DAY
     Route: 048
  2. CLINDAMYCIN PALMITATE HCL [Suspect]
     Active Substance: CLINDAMYCIN PALMITATE HYDROCHLORIDE
     Indication: INFECTION
     Dosage: UNK
     Dates: start: 20190105

REACTIONS (6)
  - Product administered to patient of inappropriate age [Unknown]
  - Throat irritation [Unknown]
  - Product quality issue [Unknown]
  - Drug ineffective [Unknown]
  - Dysgeusia [Unknown]
  - Abdominal discomfort [Recovered/Resolved]

NARRATIVE: CASE EVENT DATE: 201901
